FAERS Safety Report 20331401 (Version 1)
Quarter: 2022Q1

REPORT INFORMATION
  Report Type: Spontaneous
  Country: US (occurrence: None)
  Receive Date: 20220112
  Receipt Date: 20220112
  Transmission Date: 20220423
  Serious: Yes (Other)
  Sender: FDA-Public Use
  Company Number: None

PATIENT

DRUGS (1)
  1. BUPRENORPHINE\NALOXONE [Suspect]
     Active Substance: BUPRENORPHINE\NALOXONE
     Indication: Drug use disorder
     Dosage: FREQUENCY : DAILY;?
     Route: 060

REACTIONS (6)
  - Nausea [None]
  - Vomiting [None]
  - Drug ineffective [None]
  - Incorrect dose administered [None]
  - Product solubility abnormal [None]
  - Drug dependence [None]
